FAERS Safety Report 8545031-5 (Version None)
Quarter: 2012Q3

REPORT INFORMATION
  Report Type: 
  Country: None (occurrence: None)
  Receive Date: 20120727
  Receipt Date: 20120717
  Transmission Date: 20120928
  Serious: Yes (Hospitalization)
  Sender: FDA-Public Use
  Company Number: JP-JNJFOC-20120711043

PATIENT
  Sex: Male
  Weight: 75.3 kg

DRUGS (16)
  1. INVEGA [Suspect]
     Indication: SCHIZOPHRENIA, PARANOID TYPE
     Route: 048
     Dates: start: 20120422, end: 20120502
  2. FLUNITRAZEPAM [Concomitant]
     Indication: SCHIZOPHRENIA, PARANOID TYPE
     Route: 048
  3. METFORMIN HCL [Concomitant]
     Indication: DIABETES MELLITUS
     Route: 048
     Dates: start: 20110718
  4. ZYPREXA [Concomitant]
     Indication: SCHIZOPHRENIA, PARANOID TYPE
     Route: 048
     Dates: end: 20110523
  5. INVEGA [Suspect]
     Route: 048
     Dates: start: 20110619, end: 20110708
  6. SENNOSIDE [Concomitant]
     Indication: PROPHYLAXIS
     Route: 048
  7. INVEGA [Suspect]
     Route: 048
     Dates: start: 20110709, end: 20120407
  8. ABILIFY [Concomitant]
     Route: 048
     Dates: start: 20110429
  9. AMARYL [Concomitant]
     Indication: DIABETES MELLITUS
     Route: 048
     Dates: start: 20110625, end: 20110717
  10. INVEGA [Suspect]
     Route: 048
     Dates: start: 20110522, end: 20110618
  11. PROMETHAZINE HCL [Concomitant]
     Indication: PROPHYLAXIS
     Route: 048
  12. ABILIFY [Concomitant]
     Indication: SCHIZOPHRENIA, PARANOID TYPE
     Route: 048
     Dates: start: 20110408, end: 20110428
  13. INVEGA [Suspect]
     Route: 048
     Dates: start: 20120408, end: 20120421
  14. MAGNESIUM OXIDE [Concomitant]
     Indication: PROPHYLAXIS
     Route: 048
  15. VOGLIBOSE [Concomitant]
     Indication: DIABETES MELLITUS
     Route: 048
     Dates: start: 20110618
  16. LORAZEPAM [Concomitant]
     Indication: SCHIZOPHRENIA, PARANOID TYPE
     Route: 048
     Dates: start: 20120324

REACTIONS (3)
  - SCHIZOPHRENIA [None]
  - HYPERPROLACTINAEMIA [None]
  - IRRITABILITY [None]
